FAERS Safety Report 23668919 (Version 5)
Quarter: 2024Q2

REPORT INFORMATION
  Report Type: Spontaneous
  Country: JP (occurrence: None)
  Receive Date: 20240325
  Receipt Date: 20240606
  Transmission Date: 20240715
  Serious: Yes (Other)
  Sender: FDA-Public Use
  Company Number: 2023A255407

PATIENT
  Age: 27579 Day
  Sex: Male
  Weight: 65 kg

DRUGS (4)
  1. IMFINZI [Suspect]
     Active Substance: DURVALUMAB
     Indication: Hepatocellular carcinoma
     Dosage: DOSE UNKNOWN
     Route: 041
     Dates: start: 20230802, end: 20231213
  2. IMJUDO [Suspect]
     Active Substance: TREMELIMUMAB\TREMELIMUMAB-ACTL
     Indication: Hepatocellular carcinoma
     Dosage: DOSE UNKNOWN
     Route: 041
     Dates: start: 20230802, end: 20230802
  3. IOPAMIDOL [Suspect]
     Active Substance: IOPAMIDOL
     Dosage: DOSE UNKNOWN
     Dates: start: 20231114
  4. LAGEVRIO [Suspect]
     Active Substance: MOLNUPIRAVIR
     Indication: COVID-19
     Dosage: DOSE UNKNOWN

REACTIONS (7)
  - Adrenocorticotropic hormone deficiency [Recovered/Resolved]
  - Anaphylactic reaction [Recovered/Resolved]
  - Rash erythematous [Recovered/Resolved]
  - COVID-19 [Unknown]
  - Eczema [Recovering/Resolving]
  - Rash [Unknown]
  - Inappropriate schedule of product administration [Unknown]

NARRATIVE: CASE EVENT DATE: 20230805
